FAERS Safety Report 21960590 (Version 1)
Quarter: 2023Q1

REPORT INFORMATION
  Report Type: Spontaneous
  Country: US (occurrence: US)
  Receive Date: 20230207
  Receipt Date: 20230207
  Transmission Date: 20230418
  Serious: Yes (Other)
  Sender: FDA-Public Use
  Company Number: US-NOVOPROD-1018630

PATIENT
  Age: 72 Year
  Sex: Female

DRUGS (2)
  1. TRESIBA [Suspect]
     Active Substance: INSULIN DEGLUDEC
     Indication: Type 1 diabetes mellitus
     Dosage: 10 IU, QD
     Route: 058
     Dates: start: 202203
  2. HUMALOG [Concomitant]
     Active Substance: INSULIN LISPRO
     Indication: Type 1 diabetes mellitus
     Dosage: SLIDING SCALE
     Route: 058
     Dates: start: 202203

REACTIONS (6)
  - Bone cancer [Not Recovered/Not Resolved]
  - Recurrent cancer [Not Recovered/Not Resolved]
  - Blood glucose increased [Unknown]
  - Weight decreased [Unknown]
  - Steatorrhoea [Not Recovered/Not Resolved]
  - Dyspepsia [Not Recovered/Not Resolved]

NARRATIVE: CASE EVENT DATE: 20220301
